FAERS Safety Report 14919486 (Version 1)
Quarter: 2018Q2

REPORT INFORMATION
  Report Type: Spontaneous
  Country: FR (occurrence: FR)
  Receive Date: 20180521
  Receipt Date: 20180521
  Transmission Date: 20180711
  Serious: Yes (Hospitalization)
  Sender: FDA-Public Use
  Company Number: FR-MYLANLABS-2018M1033614

PATIENT
  Age: 24 Year
  Sex: Female

DRUGS (1)
  1. CLOZAPINE MYLAN [Suspect]
     Active Substance: CLOZAPINE
     Indication: PRODUCT USED FOR UNKNOWN INDICATION
     Dosage: 2 DF, PM

REACTIONS (4)
  - Basophil count increased [Unknown]
  - Hospitalisation [Unknown]
  - White blood cell count increased [Unknown]
  - Band neutrophil count increased [Unknown]

NARRATIVE: CASE EVENT DATE: 20180503
